FAERS Safety Report 6690627-9 (Version None)
Quarter: 2010Q2

REPORT INFORMATION
  Report Type: 
  Country: None (occurrence: None)
  Receive Date: 20100421
  Receipt Date: 20100412
  Transmission Date: 20101027
  Serious: Yes (Other)
  Sender: FDA-Public Use
  Company Number: US-JNJFOC-20100401328

PATIENT
  Sex: Female
  Weight: 65.77 kg

DRUGS (1)
  1. NUCYNTA [Suspect]
     Indication: INTENTIONAL DRUG MISUSE
     Dosage: 3 TABLETS
     Route: 055

REACTIONS (2)
  - HALLUCINATION, VISUAL [None]
  - INTENTIONAL DRUG MISUSE [None]
